FAERS Safety Report 14229505 (Version 1)
Quarter: 2017Q4

REPORT INFORMATION
  Report Type: Spontaneous
  Country: US (occurrence: None)
  Receive Date: 20171128
  Receipt Date: 20171128
  Transmission Date: 20180321
  Serious: Yes (Life-Threatening, Disabling, Other)
  Sender: FDA-Public Use
  Company Number: None

PATIENT
  Age: 79 Year
  Sex: Male
  Weight: 74.84 kg

DRUGS (1)
  1. SENSIPAR [Suspect]
     Active Substance: CINACALCET HYDROCHLORIDE
     Route: 048

REACTIONS (7)
  - Gait disturbance [None]
  - Disturbance in attention [None]
  - Weight decreased [None]
  - Haemorrhage [None]
  - Haematochezia [None]
  - Pruritus [None]
  - Balance disorder [None]

NARRATIVE: CASE EVENT DATE: 20170818
